FAERS Safety Report 17263353 (Version 1)
Quarter: 2020Q1

REPORT INFORMATION
  Report Type: Spontaneous
  Country: US (occurrence: US)
  Receive Date: 20200112
  Receipt Date: 20200112
  Transmission Date: 20200409
  Serious: Yes (Death)
  Sender: FDA-Public Use
  Company Number: None

PATIENT
  Age: 66 Year
  Sex: Male
  Weight: 90 kg

DRUGS (2)
  1. ZANTAC 150 (RANITIDINE HYDROCHLORIDE) [Suspect]
     Active Substance: RANITIDINE HYDROCHLORIDE
  2. ZANTAC 75 [Suspect]
     Active Substance: RANITIDINE HYDROCHLORIDE

REACTIONS (10)
  - Gastric cancer [None]
  - Spinal disorder [None]
  - Neoplasm malignant [None]
  - Pancreatic carcinoma [None]
  - Haematemesis [None]
  - Hepatic cancer [None]
  - Lung neoplasm malignant [None]
  - Internal haemorrhage [None]
  - Multiple organ dysfunction syndrome [None]
  - Product complaint [None]

NARRATIVE: CASE EVENT DATE: 20190211
